FAERS Safety Report 24611580 (Version 4)
Quarter: 2024Q4

REPORT INFORMATION
  Report Type: Spontaneous
  Country: US (occurrence: US)
  Receive Date: 20241113
  Receipt Date: 20241217
  Transmission Date: 20250114
  Serious: Yes (Other)
  Sender: NOVARTIS
  Company Number: US-002147023-NVSC2024US218782

PATIENT
  Sex: Male
  Weight: 80.9 kg

DRUGS (1)
  1. PLUVICTO [Suspect]
     Active Substance: LUTETIUM LU-177 VIPIVOTIDE TETRAXETAN
     Indication: Prostate cancer
     Dosage: UNK(RECEIVED 4 PLUVICTO TREATMENTS))
     Route: 042
     Dates: start: 20240528, end: 20241001

REACTIONS (4)
  - Metastases to bone [Not Recovered/Not Resolved]
  - Pain [Not Recovered/Not Resolved]
  - General physical health deterioration [Not Recovered/Not Resolved]
  - Prostatic specific antigen increased [Not Recovered/Not Resolved]
